FAERS Safety Report 17129502 (Version 2)
Quarter: 2019Q4

REPORT INFORMATION
  Report Type: Report from Study
  Country: GB (occurrence: US)
  Receive Date: 20191209
  Receipt Date: 20191218
  Transmission Date: 20200122
  Serious: Yes (Hospitalization)
  Sender: FDA-Public Use
  Company Number: US-ASTELLAS-2019US049093

PATIENT
  Sex: Female

DRUGS (2)
  1. ERLOTINIB [Suspect]
     Active Substance: ERLOTINIB
     Indication: BONE CANCER
     Route: 048
  2. ERLOTINIB [Suspect]
     Active Substance: ERLOTINIB
     Route: 048

REACTIONS (3)
  - Drug intolerance [Unknown]
  - Off label use [Unknown]
  - Intentional product use issue [Unknown]
